FAERS Safety Report 7310835-3 (Version None)
Quarter: 2011Q1

REPORT INFORMATION
  Report Type: 
  Country: None (occurrence: None)
  Receive Date: 20110224
  Receipt Date: 20110216
  Transmission Date: 20110831
  Serious: Yes (Death)
  Sender: FDA-Public Use
  Company Number: CA-MEDIMMUNE-MEDI-0012399

PATIENT
  Sex: Male

DRUGS (2)
  1. SYNAGIS [Suspect]
     Dates: start: 20101101, end: 20101227
  2. FERROUS SULFATE TAB [Concomitant]
     Route: 048

REACTIONS (1)
  - SUDDEN DEATH [None]
